FAERS Safety Report 9733193 (Version 1)
Quarter: 2013Q4

REPORT INFORMATION
  Report Type: Spontaneous
  Country: US (occurrence: US)
  Receive Date: 20131205
  Receipt Date: 20131205
  Transmission Date: 20140711
  Serious: No
  Sender: FDA-Public Use
  Company Number: US-TEVA-448293USA

PATIENT
  Age: 55 Year
  Sex: Female
  Weight: 70.37 kg

DRUGS (6)
  1. AZILECT [Suspect]
     Indication: PARKINSON^S DISEASE
     Dates: start: 20130718
  2. CLONAZEPAM [Concomitant]
     Indication: ANXIETY
  3. CLONAZEPAM [Concomitant]
     Indication: STRESS
  4. VITAMIN D [Concomitant]
     Indication: VITAMIN SUPPLEMENTATION
  5. VITAMIN B [Concomitant]
     Indication: VITAMIN SUPPLEMENTATION
  6. VITAMIN C [Concomitant]
     Indication: VITAMIN SUPPLEMENTATION

REACTIONS (5)
  - Tremor [Not Recovered/Not Resolved]
  - Balance disorder [Not Recovered/Not Resolved]
  - Nervousness [Not Recovered/Not Resolved]
  - Mood swings [Recovered/Resolved]
  - Aphonia [Recovered/Resolved]
